FAERS Safety Report 9207005 (Version 1)
Quarter: 2013Q1

REPORT INFORMATION
  Report Type: Spontaneous
  Country: US (occurrence: None)
  Receive Date: 20120710
  Receipt Date: 20120710
  Transmission Date: 20140127
  Serious: Yes (Death)
  Sender: FDA-Public Use
  Company Number: 2011070225

PATIENT
  Age: 21 Year
  Sex: Male
  Weight: 134.27 kg

DRUGS (3)
  1. CARISOPRODOL [Suspect]
  2. METHADONE (METHADONE) [Suspect]
  3. DIAZEPAM (DIAZEPAM) [Suspect]

REACTIONS (1)
  - Toxicity to various agents [None]
